FAERS Safety Report 7440800-7 (Version None)
Quarter: 2011Q2

REPORT INFORMATION
  Report Type: 
  Country: None (occurrence: None)
  Receive Date: 20110427
  Receipt Date: 20110418
  Transmission Date: 20111010
  Serious: Yes (Other)
  Sender: FDA-Public Use
  Company Number: US-CEPHALON-2011001908

PATIENT
  Sex: Female

DRUGS (2)
  1. MORPHINE [Concomitant]
     Dates: start: 20080101
  2. FENTORA [Suspect]
     Indication: BACK PAIN
     Route: 002

REACTIONS (1)
  - POOR QUALITY DRUG ADMINISTERED [None]
